FAERS Safety Report 11932560 (Version 1)
Quarter: 2016Q1

REPORT INFORMATION
  Report Type: Report from Study
  Country: CA (occurrence: CA)
  Receive Date: 20160120
  Receipt Date: 20160120
  Transmission Date: 20160526
  Serious: Yes (Other)
  Sender: FDA-Public Use
  Company Number: CA-TAKEDA-2016TUS000531

PATIENT
  Age: 33 Year
  Sex: Male

DRUGS (4)
  1. HUMIRA [Concomitant]
     Active Substance: ADALIMUMAB
     Dosage: UNK
  2. SALOFALK                           /00000301/ [Concomitant]
     Active Substance: MESALAMINE
     Dosage: 2 G, QD
     Route: 054
  3. VEDOLIZUMAB [Suspect]
     Active Substance: VEDOLIZUMAB
     Indication: COLITIS ULCERATIVE
     Dosage: 300 MG, UNK
     Route: 042
     Dates: start: 20150609
  4. ASACOL [Concomitant]
     Active Substance: MESALAMINE
     Dosage: 2400 MG, BID

REACTIONS (1)
  - Ligament rupture [Not Recovered/Not Resolved]

NARRATIVE: CASE EVENT DATE: 201506
